FAERS Safety Report 6130001-7 (Version None)
Quarter: 2009Q1

REPORT INFORMATION
  Report Type: 
  Country: None (occurrence: None)
  Receive Date: 20090323
  Receipt Date: 20090323
  Transmission Date: 20090719
  Serious: Yes (Disabling)
  Sender: FDA-Public Use
  Company Number: None

PATIENT
  Age: 71 Year
  Sex: Female
  Weight: 49.8957 kg

DRUGS (2)
  1. LEVAQUIN [Suspect]
     Indication: PNEUMONIA
     Dosage: 400MG 1 DAILY PO
     Route: 048
     Dates: start: 20080301, end: 20080307
  2. LEVAQUIN [Suspect]
     Indication: PNEUMONIA
     Dosage: 400MG 1 DAILY PO
     Route: 048
     Dates: start: 20090304, end: 20090304

REACTIONS (8)
  - ASTHENIA [None]
  - CHILLS [None]
  - DIARRHOEA [None]
  - DIZZINESS [None]
  - FATIGUE [None]
  - TENDON PAIN [None]
  - TENDON RUPTURE [None]
  - VOMITING [None]
